FAERS Safety Report 13285675 (Version 1)
Quarter: 2017Q1

REPORT INFORMATION
  Report Type: Spontaneous
  Country: US (occurrence: US)
  Receive Date: 20170301
  Receipt Date: 20170301
  Transmission Date: 20170428
  Serious: No
  Sender: FDA-Public Use
  Company Number: None

PATIENT
  Age: 70 Year
  Sex: Male

DRUGS (1)
  1. ADYNOVATE [Suspect]
     Active Substance: ANTIHEMOPHILIC FACTOR, HUMAN RECOMBINANT
     Indication: FACTOR VIII DEFICIENCY
     Dosage: DOSE - 3090 UNITS
     Route: 042
     Dates: start: 20170224

REACTIONS (3)
  - Dizziness [None]
  - Infusion related reaction [None]
  - Tinnitus [None]

NARRATIVE: CASE EVENT DATE: 20170224
